FAERS Safety Report 9261627 (Version 3)
Quarter: 2013Q2

REPORT INFORMATION
  Report Type: Spontaneous
  Country: US (occurrence: US)
  Receive Date: 20130429
  Receipt Date: 20130617
  Transmission Date: 20140414
  Serious: Yes (Other)
  Sender: FDA-Public Use
  Company Number: US-PFIZER INC-2013127613

PATIENT
  Age: 44 Year
  Sex: Female
  Weight: 82.13 kg

DRUGS (9)
  1. PRISTIQ [Suspect]
     Indication: ANXIETY
     Dosage: 100 MG, PER DAY
     Route: 048
     Dates: start: 201008
  2. PRISTIQ [Suspect]
     Dosage: 50 MG, PER DAY
     Route: 048
     Dates: start: 20130116
  3. PRISTIQ [Suspect]
     Dosage: 100 MG, 1X/DAY
     Route: 048
  4. BENLYSTA [Suspect]
     Indication: SYSTEMIC LUPUS ERYTHEMATOSUS
     Dosage: 816 MG, CYCLIC (EVERY 4 WEEKS); ABOUT 18-20 GTTS PER MIN
     Route: 042
     Dates: start: 20130116, end: 20130130
  5. CELEBREX [Concomitant]
     Indication: PAIN
     Dosage: 200 MG, (EVERY 12 HRS)
     Dates: start: 2010
  6. METHOTREXATE [Concomitant]
     Dosage: 22.5 MG, WEEKLY
     Dates: start: 2009
  7. FOLIC ACID [Concomitant]
     Dosage: 1 MG, 1X/DAY
     Dates: start: 2009
  8. VICODIN [Concomitant]
     Indication: PAIN
     Dosage: 5MG/500MG 3X/DAY (EVERY 8 HR)
     Dates: start: 2011
  9. LISINOPRIL [Concomitant]
     Dosage: UNK

REACTIONS (11)
  - Infusion related reaction [Recovered/Resolved]
  - Chest discomfort [Recovered/Resolved]
  - Feeling abnormal [Recovered/Resolved]
  - Chest pain [Recovered/Resolved]
  - Headache [Recovered/Resolved]
  - Hypertension [Recovered/Resolved]
  - Cough [Recovered/Resolved]
  - Respiratory rate increased [Recovered/Resolved]
  - Palpitations [Recovered/Resolved]
  - Dyspnoea [Recovered/Resolved]
  - Nausea [Recovering/Resolving]
